FAERS Safety Report 10194893 (Version 1)
Quarter: 2014Q2

REPORT INFORMATION
  Report Type: Spontaneous
  Country: US (occurrence: US)
  Receive Date: 20140526
  Receipt Date: 20140526
  Transmission Date: 20141212
  Serious: No
  Sender: FDA-Public Use
  Company Number: US-PFIZER INC-2014140708

PATIENT
  Age: 48 Year
  Sex: Male
  Weight: 88.4 kg

DRUGS (1)
  1. RAPAMUNE [Suspect]
     Indication: RENAL FAILURE
     Dosage: UNK, DAILY
     Dates: end: 20140517

REACTIONS (1)
  - Blood count abnormal [Unknown]
